FAERS Safety Report 17121511 (Version 1)
Quarter: 2019Q4

REPORT INFORMATION
  Report Type: Spontaneous
  Country: ES (occurrence: ES)
  Receive Date: 20191206
  Receipt Date: 20191206
  Transmission Date: 20200122
  Serious: Yes (Hospitalization, Other)
  Sender: FDA-Public Use
  Company Number: ES-GLAXOSMITHKLINE-ES2019EME218520

PATIENT

DRUGS (2)
  1. LAMICTAL [Suspect]
     Active Substance: LAMOTRIGINE
     Indication: EPILEPSY
     Dosage: UNK
     Dates: start: 201801
  2. DEPAKINE [Suspect]
     Active Substance: VALPROATE SODIUM
     Indication: EPILEPSY
     Dosage: UNK

REACTIONS (18)
  - Glossodynia [Unknown]
  - Gingival pain [Unknown]
  - Skin burning sensation [Unknown]
  - General physical health deterioration [Unknown]
  - Product prescribing error [Unknown]
  - Pyrexia [Unknown]
  - Skin exfoliation [Unknown]
  - Blood pressure abnormal [Unknown]
  - Liver disorder [Unknown]
  - Visual impairment [Unknown]
  - Stevens-Johnson syndrome [Unknown]
  - Necrosis [Unknown]
  - Nipple disorder [Unknown]
  - Sleep deficit [Unknown]
  - Skin discolouration [Unknown]
  - Onychomadesis [Unknown]
  - Renal disorder [Unknown]
  - Photosensitivity reaction [Unknown]
